FAERS Safety Report 7118096-5 (Version None)
Quarter: 2010Q4

REPORT INFORMATION
  Report Type: 
  Country: None (occurrence: None)
  Receive Date: 20101123
  Receipt Date: 20101116
  Transmission Date: 20110411
  Serious: Yes (Other)
  Sender: FDA-Public Use
  Company Number: US-PFIZER INC-2010126204

PATIENT
  Sex: Male

DRUGS (1)
  1. SUTENT [Suspect]
     Dosage: 50 MG, 1X/DAY, FOR 14 DAYS EVERY 21 DAYS
     Route: 048

REACTIONS (2)
  - ARRHYTHMIA [None]
  - NAUSEA [None]
